FAERS Safety Report 5620809-6 (Version None)
Quarter: 2008Q1

REPORT INFORMATION
  Report Type: 
  Country: None (occurrence: None)
  Receive Date: 20080208
  Receipt Date: 20080129
  Transmission Date: 20080703
  Serious: Yes (Other)
  Sender: FDA-Public Use
  Company Number: US-PFIZER INC-2008009480

PATIENT

DRUGS (1)
  1. LIPITOR [Suspect]

REACTIONS (1)
  - AMYOTROPHIC LATERAL SCLEROSIS [None]
